FAERS Safety Report 11190643 (Version 7)
Quarter: 2019Q4

REPORT INFORMATION
  Report Type: Spontaneous
  Country: FR (occurrence: FR)
  Receive Date: 20150615
  Receipt Date: 20191129
  Transmission Date: 20200122
  Serious: Yes (Hospitalization, Other)
  Sender: FDA-Public Use
  Company Number: FR-B.I. PHARMACEUTICALS,INC./RIDGEFIELD-2015-BI-23502FF

PATIENT
  Sex: Female

DRUGS (4)
  1. SIFROL [Suspect]
     Active Substance: PRAMIPEXOLE
     Indication: PARKINSON^S DISEASE
     Route: 048
     Dates: start: 2006
  2. SIFROL [Suspect]
     Active Substance: PRAMIPEXOLE
     Route: 048
  3. AZILECT [Concomitant]
     Active Substance: RASAGILINE MESYLATE
     Indication: PARKINSON^S DISEASE
     Route: 065
     Dates: start: 20101216
  4. SIFROL [Suspect]
     Active Substance: PRAMIPEXOLE
     Dosage: FORMULATION: PROLONGED RELEASE (LP)
     Route: 048
     Dates: end: 20160107

REACTIONS (7)
  - Product use in unapproved indication [Unknown]
  - Accidental overdose [Unknown]
  - Weight increased [Unknown]
  - Erysipelas [Unknown]
  - Gambling disorder [Recovered/Resolved]
  - Glaucoma [Not Recovered/Not Resolved]
  - Pachymeningitis [Not Recovered/Not Resolved]

NARRATIVE: CASE EVENT DATE: 2006
